FAERS Safety Report 4860103-4 (Version None)
Quarter: 2005Q4

REPORT INFORMATION
  Report Type: 
  Country: None (occurrence: None)
  Receive Date: 20051219
  Receipt Date: 20051005
  Transmission Date: 20060501
  Serious: Yes (Hospitalization, Other)
  Sender: FDA-Public Use
  Company Number: US-MERCK-0510USA04576

PATIENT
  Age: 58 Year
  Sex: Male
  Weight: 95 kg

DRUGS (3)
  1. VIOXX [Suspect]
     Indication: BACK PAIN
     Route: 048
     Dates: start: 20000126, end: 20010220
  2. VIOXX [Suspect]
     Route: 048
     Dates: start: 20000126, end: 20010501
  3. TRAZODONE HYDROCHLORIDE [Concomitant]
     Route: 065

REACTIONS (17)
  - AORTIC VALVE CALCIFICATION [None]
  - BACK PAIN [None]
  - BALANCE DISORDER [None]
  - CARDIAC FAILURE [None]
  - CARDIOVASCULAR DISORDER [None]
  - CEREBROVASCULAR ACCIDENT [None]
  - DIABETES MELLITUS [None]
  - DIABETIC COMA [None]
  - DIABETIC KETOACIDOSIS [None]
  - DISTURBANCE IN ATTENTION [None]
  - ERECTILE DYSFUNCTION [None]
  - HYPERTENSION [None]
  - INTERVERTEBRAL DISC PROTRUSION [None]
  - MITRAL VALVE CALCIFICATION [None]
  - MYOCARDIAL INFARCTION [None]
  - OEDEMA PERIPHERAL [None]
  - ROTATOR CUFF SYNDROME [None]
